APPROVED DRUG PRODUCT: CHLORTHALIDONE
Active Ingredient: CHLORTHALIDONE
Strength: 50MG
Dosage Form/Route: TABLET;ORAL
Application: A086831 | Product #001 | TE Code: AB
Applicant: MYLAN PHARMACEUTICALS INC
Approved: Approved Prior to Jan 1, 1982 | RLD: Yes | RS: Yes | Type: RX